FAERS Safety Report 16313509 (Version 2)
Quarter: 2019Q2

REPORT INFORMATION
  Report Type: Spontaneous
  Country: US (occurrence: US)
  Receive Date: 20190515
  Receipt Date: 20190515
  Transmission Date: 20190711
  Serious: Yes (Death, Hospitalization, Other)
  Sender: FDA-Public Use
  Company Number: PHHY2019US109454

PATIENT
  Age: 57 Year
  Sex: Female

DRUGS (1)
  1. CICLOSPORIN [Suspect]
     Active Substance: CYCLOSPORINE
     Indication: APLASTIC ANAEMIA
     Dosage: UNK
     Route: 065

REACTIONS (7)
  - Neutropenia [Fatal]
  - Pseudomonas infection [Fatal]
  - Oral herpes [Recovering/Resolving]
  - Genital herpes [Recovering/Resolving]
  - Product use in unapproved indication [Unknown]
  - Pyrexia [Fatal]
  - Septic shock [Fatal]
